FAERS Safety Report 10457281 (Version 1)
Quarter: 2014Q3

REPORT INFORMATION
  Report Type: Spontaneous
  Country: US (occurrence: US)
  Receive Date: 20140916
  Receipt Date: 20140916
  Transmission Date: 20150326
  Serious: Yes (Other)
  Sender: FDA-Public Use
  Company Number: US-BAYER-2014-135769

PATIENT
  Age: 37 Year
  Sex: Female

DRUGS (1)
  1. YAZ [Suspect]
     Active Substance: DROSPIRENONE\ETHINYL ESTRADIOL
     Indication: CONTRACEPTION
     Dosage: 3 MG DRSP/ .02 MG EE
     Route: 048

REACTIONS (5)
  - Menstruation delayed [None]
  - Abdominal pain lower [None]
  - Hypomenorrhoea [None]
  - Premenstrual syndrome [None]
  - Helicobacter gastritis [None]

NARRATIVE: CASE EVENT DATE: 20140903
